FAERS Safety Report 6248928-4 (Version None)
Quarter: 2009Q2

REPORT INFORMATION
  Report Type: 
  Country: None (occurrence: None)
  Receive Date: 20090629
  Receipt Date: 20090616
  Transmission Date: 20091009
  Serious: Yes (Other)
  Sender: FDA-Public Use
  Company Number: GB-PFIZER INC-2009227427

PATIENT
  Age: 47 Year

DRUGS (6)
  1. CHAMPIX [Suspect]
     Indication: SMOKING CESSATION THERAPY
     Dosage: 1 MG, 2X/DAY
     Route: 048
     Dates: start: 20090320, end: 20090417
  2. CODEINE [Concomitant]
     Dosage: 30 MG, 4X/DAY
     Route: 048
     Dates: start: 20090325
  3. LANSOPRAZOLE [Concomitant]
     Indication: GASTROOESOPHAGEAL REFLUX DISEASE
     Dosage: 30 MG, 1X/DAY
     Route: 048
     Dates: start: 20090217
  4. LISINOPRIL [Concomitant]
     Indication: HYPERTENSION
     Dosage: 5 MG, UNK
     Route: 048
     Dates: start: 20080501
  5. SERETIDE [Concomitant]
     Indication: ASTHMA
     Dosage: 2 DF, 2X/DAY
     Route: 055
     Dates: start: 20080129
  6. VENTOLIN [Concomitant]
     Indication: ASTHMA
     Dosage: 2 DF, AS NEEDED
     Route: 055
     Dates: start: 20061211

REACTIONS (2)
  - DEPRESSION [None]
  - OVERDOSE [None]
